FAERS Safety Report 6853611-8 (Version None)
Quarter: 2010Q3

REPORT INFORMATION
  Report Type: 
  Country: None (occurrence: None)
  Receive Date: 20100717
  Receipt Date: 20071211
  Transmission Date: 20110219
  Serious: No
  Sender: FDA-Public Use
  Company Number: US-PFIZER INC-2007106190

PATIENT
  Sex: Female
  Weight: 113.4 kg

DRUGS (7)
  1. CHANTIX [Suspect]
     Indication: SMOKING CESSATION THERAPY
     Dates: start: 20071101
  2. PLAVIX [Concomitant]
  3. VYTORIN [Concomitant]
  4. ZOLOFT [Concomitant]
  5. ENALAPRIL MALEATE [Concomitant]
  6. ACETYLSALICYLIC ACID [Concomitant]
  7. LANTUS [Concomitant]

REACTIONS (2)
  - NIGHT SWEATS [None]
  - NIGHTMARE [None]
